FAERS Safety Report 9975845 (Version 1)
Quarter: 2014Q1

REPORT INFORMATION
  Report Type: Spontaneous
  Country: US (occurrence: US)
  Receive Date: 20140306
  Receipt Date: 20140306
  Transmission Date: 20141002
  Serious: No
  Sender: FDA-Public Use
  Company Number: US-LUNDBECK-DKLU1097477

PATIENT
  Age: 9 Year
  Sex: Female

DRUGS (1)
  1. SABRIL (TABLET) [Suspect]
     Indication: CONVULSION
     Route: 048
     Dates: start: 20130619

REACTIONS (2)
  - Tooth discolouration [Unknown]
  - Toothache [Unknown]
